FAERS Safety Report 10307705 (Version 1)
Quarter: 2014Q3

REPORT INFORMATION
  Report Type: Spontaneous
  Country: US (occurrence: US)
  Receive Date: 20140716
  Receipt Date: 20140716
  Transmission Date: 20150326
  Serious: No
  Sender: FDA-Public Use
  Company Number: US-GLAXOSMITHKLINE-A1075904A

PATIENT
  Age: 94 Year
  Sex: Male

DRUGS (9)
  1. OXYGEN. [Concomitant]
     Active Substance: OXYGEN
  2. ALLERGY MEDICINE [Concomitant]
     Active Substance: DIPHENHYDRAMINE HYDROCHLORIDE
  3. FLUNISOLIDE NASAL SPRAY [Concomitant]
  4. OMEPRAZOLE. [Concomitant]
     Active Substance: OMEPRAZOLE
  5. ENALAPRIL [Concomitant]
     Active Substance: ENALAPRIL
  6. FUROSEMIDE. [Concomitant]
     Active Substance: FUROSEMIDE
  7. LEVOTHYROXINE [Concomitant]
     Active Substance: LEVOTHYROXINE
  8. ANORO ELLIPTA [Suspect]
     Active Substance: UMECLIDINIUM BROMIDE\VILANTEROL TRIFENATATE
     Indication: CHRONIC OBSTRUCTIVE PULMONARY DISEASE
     Dosage: 1PUFF PER DAY
     Route: 055
     Dates: start: 20140603
  9. UNSPECIFIED MEDICATIONS [Concomitant]
     Active Substance: UNSPECIFIED INGREDIENT

REACTIONS (2)
  - Epistaxis [Recovered/Resolved]
  - Rhinorrhoea [Unknown]

NARRATIVE: CASE EVENT DATE: 20140604
